FAERS Safety Report 9148619 (Version 1)
Quarter: 2013Q1

REPORT INFORMATION
  Report Type: Spontaneous
  Country: US (occurrence: US)
  Receive Date: 20130308
  Receipt Date: 20130308
  Transmission Date: 20140127
  Serious: Yes (Other)
  Sender: FDA-Public Use
  Company Number: US-ENDO PHARMACEUTICALS INC.-OPCR20122080

PATIENT
  Age: 42 None
  Sex: Male
  Weight: 82.63 kg

DRUGS (5)
  1. OPANA ER [Suspect]
     Indication: BACK PAIN
     Route: 048
     Dates: start: 2012, end: 201210
  2. MORPHINE [Suspect]
     Indication: DRUG ABUSE
     Dosage: UNKNOWN
     Route: 065
  3. OXYCODONE [Suspect]
     Indication: DRUG ABUSE
     Dosage: UNKNOWN
     Route: 065
  4. OPANA [Concomitant]
     Indication: BREAKTHROUGH PAIN
     Route: 048
  5. OPANA ER [Concomitant]
     Indication: BREAKTHROUGH PAIN
     Dosage: UNKNOWN
     Route: 048
     Dates: end: 2012

REACTIONS (4)
  - Drug abuse [Unknown]
  - Withdrawal syndrome [Unknown]
  - Medication residue present [Recovered/Resolved]
  - Drug effect decreased [Recovered/Resolved]
